FAERS Safety Report 7996846 (Version 2)
Quarter: 2012Q4

REPORT INFORMATION
  Report Type: 
  Country: CA (occurrence: CA)
  Receive Date: 20110617
  Receipt Date: 20121109
  Transmission Date: 20130627
  Serious: Yes (Hospitalization, Other)
  Sender: FDA-Public Use
  Company Number: PHMT2006CA02053

PATIENT
  Sex: Male

DRUGS (10)
  1. SANDOSTATIN LAR [Suspect]
     Dosage: 40 mg once a month
     Route: 030
     Dates: start: 19970301, end: 20070620
  2. ANDRIOL [Concomitant]
  3. APO-AMITRIPTYLINE [Concomitant]
     Dosage: 10 mg, QHS
  4. BROMOCRIPTINE [Concomitant]
     Dosage: 2.5 mg, TID
  5. CORTEF [Concomitant]
     Dosage: 20 mg, QD
  6. CRESTOR [Concomitant]
     Dosage: 10 g, QHS
  7. METFORMIN HYDROCHLORIDE [Concomitant]
  8. SYNTHROID [Concomitant]
     Dosage: 0.175 mg, QD
  9. WARFARIN [Concomitant]
     Dosage: 5 mg, QD
  10. COUMADIN [Concomitant]

REACTIONS (10)
  - Chest pain [Unknown]
  - Hypoaesthesia [Unknown]
  - Coagulopathy [Unknown]
  - Pulmonary embolism [Unknown]
  - Heart rate decreased [Unknown]
  - Pallor [Unknown]
  - Limb discomfort [Unknown]
  - Contusion [Recovering/Resolving]
  - Blood disorder [Unknown]
  - Carpal tunnel syndrome [Unknown]
